FAERS Safety Report 11626110 (Version 2)
Quarter: 2015Q4

REPORT INFORMATION
  Report Type: Report from Study
  Country: CA (occurrence: CA)
  Receive Date: 20151013
  Receipt Date: 20151014
  Transmission Date: 20160304
  Serious: Yes (Life-Threatening, Hospitalization, Other)
  Sender: FDA-Public Use
  Company Number: CA-CELGENE-028-21880-13115696

PATIENT
  Age: 54 Year
  Sex: Female
  Weight: 63.2 kg

DRUGS (11)
  1. REVLIMID [Suspect]
     Active Substance: LENALIDOMIDE
     Route: 048
  2. RITUXIMAB [Suspect]
     Active Substance: RITUXIMAB
     Indication: LYMPHOMA
     Route: 065
     Dates: start: 20131112, end: 20131120
  3. RITUXIMAB [Suspect]
     Active Substance: RITUXIMAB
     Route: 041
     Dates: start: 20140129
  4. RITUXIMAB [Suspect]
     Active Substance: RITUXIMAB
     Dosage: 325 MILLIGRAM
     Route: 041
     Dates: start: 20140219
  5. ACETYLSALICYLIC ACID [Concomitant]
     Active Substance: ASPIRIN
     Indication: THROMBOSIS PROPHYLAXIS
     Route: 065
     Dates: start: 20131111, end: 20131122
  6. RITUXIMAB [Suspect]
     Active Substance: RITUXIMAB
     Dosage: 4 MILLIGRAM
     Route: 065
     Dates: start: 20140122
  7. ALLOPURINOL. [Suspect]
     Active Substance: ALLOPURINOL
     Indication: PROPHYLAXIS
     Route: 048
     Dates: start: 20131112, end: 20131118
  8. TYLENOL [Suspect]
     Active Substance: ACETAMINOPHEN
     Indication: PREMEDICATION
     Route: 048
     Dates: start: 20131112, end: 20131120
  9. BENADRYL [Concomitant]
     Active Substance: DIPHENHYDRAMINE HYDROCHLORIDE
     Indication: DRUG HYPERSENSITIVITY
     Route: 065
     Dates: start: 20131118, end: 20131123
  10. BENADRYL [Concomitant]
     Active Substance: DIPHENHYDRAMINE HYDROCHLORIDE
     Indication: DRUG HYPERSENSITIVITY
     Dosage: 300 MILLIGRAM
     Route: 041
     Dates: start: 20131112, end: 20131112
  11. REVLIMID [Suspect]
     Active Substance: LENALIDOMIDE
     Indication: LYMPHOMA
     Route: 048
     Dates: start: 20131113, end: 20131122

REACTIONS (10)
  - Drug hypersensitivity [Unknown]
  - Stevens-Johnson syndrome [Recovered/Resolved]
  - Neutrophil count decreased [Unknown]
  - Platelet count increased [Unknown]
  - Thrombocytopenia [Recovered/Resolved]
  - Haematocrit decreased [Unknown]
  - Neutrophil count increased [Unknown]
  - Septic shock [Recovered/Resolved]
  - Bacteraemia [Recovered/Resolved]
  - Haemoglobin decreased [Unknown]

NARRATIVE: CASE EVENT DATE: 20131121
